FAERS Safety Report 7809024-5 (Version None)
Quarter: 2011Q4

REPORT INFORMATION
  Report Type: 
  Country: None (occurrence: None)
  Receive Date: 20111012
  Receipt Date: 20111012
  Transmission Date: 20120403
  Serious: Yes (Death)
  Sender: FDA-Public Use
  Company Number: None

PATIENT
  Sex: Male

DRUGS (2)
  1. CLOZARIL [Suspect]
     Indication: SCHIZOPHRENIA, PARANOID TYPE
     Dosage: 900MG
     Route: 048
  2. HALDOL [Concomitant]
     Indication: SCHIZOPHRENIA, PARANOID TYPE
     Dosage: 15MG
     Route: 048

REACTIONS (3)
  - INTESTINAL ISCHAEMIA [None]
  - GASTROINTESTINAL HAEMORRHAGE [None]
  - VOLVULUS [None]
